FAERS Safety Report 15526319 (Version 1)
Quarter: 2018Q4

REPORT INFORMATION
  Report Type: Spontaneous
  Country: IT (occurrence: IT)
  Receive Date: 20181018
  Receipt Date: 20181018
  Transmission Date: 20190205
  Serious: Yes (Hospitalization)
  Sender: FDA-Public Use
  Company Number: IT-PFIZER INC-2018418097

PATIENT
  Age: 4 Month
  Sex: Female
  Weight: 4 kg

DRUGS (4)
  1. PREVENAR [Concomitant]
     Active Substance: PNEUMOCOCCAL 7-VALENT CONJUGATE VACCINE (DIPHTHERIA CRM197 PROTEIN)
     Indication: IMMUNISATION
     Dosage: 1 DF, UNK
     Route: 030
     Dates: start: 20180913, end: 20180913
  2. DIPHTHERIA VACCINE/PERTUSSIS VACCINE/POLIO VACCINE/TETANUS VACCINE [Concomitant]
     Indication: IMMUNISATION
     Dosage: 1 DF, UNK
     Route: 030
     Dates: start: 20180913, end: 20180913
  3. ZARONTIN [Suspect]
     Active Substance: ETHOSUXIMIDE
     Dosage: 250 MG, 1X/DAY
     Route: 048
     Dates: start: 20180710, end: 20180916
  4. LUMINALE [PHENOBARBITAL SODIUM] [Interacting]
     Active Substance: PHENOBARBITAL SODIUM
     Indication: CONVULSION NEONATAL
     Dosage: 20 MG, 1X/DAY
     Route: 048
     Dates: start: 20180710, end: 20180916

REACTIONS (5)
  - Drug interaction [Recovering/Resolving]
  - Faeces pale [Recovering/Resolving]
  - Vomiting [Recovering/Resolving]
  - Diarrhoea [Recovering/Resolving]
  - Hypertransaminasaemia [Recovering/Resolving]

NARRATIVE: CASE EVENT DATE: 20180916
